FAERS Safety Report 4797872-8 (Version None)
Quarter: 2005Q3

REPORT INFORMATION
  Report Type: 
  Country: None (occurrence: None)
  Receive Date: 20050929
  Receipt Date: 20050725
  Transmission Date: 20060218
  Serious: No
  Sender: FDA-Public Use
  Company Number: 05P-163-0300734-00

PATIENT
  Age: 71 Year
  Sex: Female
  Weight: 63.9572 kg

DRUGS (6)
  1. HUMIRA [Suspect]
     Indication: RHEUMATOID ARTHRITIS
     Dosage: 40 MG, SUBCUTANEOUS
     Route: 058
     Dates: start: 20040501, end: 20050412
  2. IODINE [Concomitant]
  3. DYAZIDE [Concomitant]
  4. CLONIDINE [Concomitant]
  5. DIOVAN [Concomitant]
  6. ATENOLOL [Concomitant]

REACTIONS (4)
  - EYE PAIN [None]
  - EYELID DISORDER [None]
  - IMPAIRED HEALING [None]
  - VISUAL DISTURBANCE [None]
